FAERS Safety Report 11818447 (Version 1)
Quarter: 2015Q4

REPORT INFORMATION
  Report Type: Spontaneous
  Country: US (occurrence: None)
  Receive Date: 20151209
  Receipt Date: 20151209
  Transmission Date: 20160305
  Serious: Yes (Hospitalization)
  Sender: FDA-Public Use
  Company Number: None

PATIENT
  Age: 79 Year
  Sex: Male
  Weight: 72.6 kg

DRUGS (22)
  1. BISACODYL. [Concomitant]
     Active Substance: BISACODYL
  2. PROTTONIX [Concomitant]
  3. XALATAN [Concomitant]
     Active Substance: LATANOPROST
  4. PRAVACHOL [Concomitant]
     Active Substance: PRAVASTATIN SODIUM
  5. SUCRALFATE. [Concomitant]
     Active Substance: SUCRALFATE
  6. QUINAPRIL [Concomitant]
     Active Substance: QUINAPRIL\QUINAPRIL HYDROCHLORIDE
  7. QUINAPRIL [Concomitant]
     Active Substance: QUINAPRIL\QUINAPRIL HYDROCHLORIDE
  8. VALTREX [Concomitant]
     Active Substance: VALACYCLOVIR HYDROCHLORIDE
  9. PERCOCET [Concomitant]
     Active Substance: ACETAMINOPHEN\OXYCODONE HYDROCHLORIDE
  10. TAMSULOSIN [Concomitant]
     Active Substance: TAMSULOSIN
  11. KCL [Concomitant]
     Active Substance: POTASSIUM CHLORIDE
  12. LIDOCAINE. [Concomitant]
     Active Substance: LIDOCAINE
  13. DIAZEPAM. [Concomitant]
     Active Substance: DIAZEPAM
  14. LASIX [Concomitant]
     Active Substance: FUROSEMIDE
  15. ASPIRIN EC [Suspect]
     Active Substance: ASPIRIN
     Indication: CORONARY ARTERY DISEASE
     Route: 048
  16. DOCUSATE [Concomitant]
     Active Substance: DOCUSATE
  17. AMIODARONE 200MG PO DAILY [Suspect]
     Active Substance: AMIODARONE
  18. CARVEDILOL 3.125MG PO BID [Concomitant]
     Active Substance: CARVEDILOL
  19. ELIQUIS [Suspect]
     Active Substance: APIXABAN
     Indication: ATRIAL FIBRILLATION
     Route: 048
  20. VALTREX [Concomitant]
     Active Substance: VALACYCLOVIR HYDROCHLORIDE
  21. LASIX [Concomitant]
     Active Substance: FUROSEMIDE
  22. BREO ELLIPTA [Concomitant]
     Active Substance: FLUTICASONE FUROATE\VILANTEROL TRIFENATATE

REACTIONS (5)
  - Hypovolaemic shock [None]
  - Haemorrhagic anaemia [None]
  - Drug interaction [None]
  - Gastrointestinal haemorrhage [None]
  - Post procedural haemorrhage [None]

NARRATIVE: CASE EVENT DATE: 20150508
